FAERS Safety Report 9206449 (Version 1)
Quarter: 2013Q2

REPORT INFORMATION
  Report Type: Spontaneous
  Country: US (occurrence: None)
  Receive Date: 20130401
  Receipt Date: 20130401
  Transmission Date: 20140414
  Serious: No
  Sender: FDA-Public Use
  Company Number: None

PATIENT
  Age: 61 Year
  Sex: Female

DRUGS (2)
  1. PEGASYS [Suspect]
     Route: 058
     Dates: start: 20130103, end: 20130206
  2. RIBAVIRIN [Suspect]
     Route: 048
     Dates: start: 20130103, end: 20130206

REACTIONS (5)
  - Fatigue [None]
  - Headache [None]
  - Vomiting [None]
  - Pain in extremity [None]
  - Dysstasia [None]
